FAERS Safety Report 5369034-7 (Version None)
Quarter: 2007Q2

REPORT INFORMATION
  Report Type: 
  Country: None (occurrence: None)
  Receive Date: 20070620
  Receipt Date: 20070326
  Transmission Date: 20071010
  Serious: No
  Sender: FDA-Public Use
  Company Number: GB-DEXPHARM-2007292

PATIENT
  Sex: Female

DRUGS (1)
  1. MONOSORB XL 60 PROLONGED RELEASE TABLETS [Suspect]
     Dosage: 60 MG MILLGRAM(S) ORAL
     Route: 048

REACTIONS (4)
  - HEART RATE INCREASED [None]
  - PALPITATIONS [None]
  - PANIC ATTACK [None]
  - PHARMACEUTICAL PRODUCT COMPLAINT [None]
